FAERS Safety Report 8204375-7 (Version None)
Quarter: 2012Q1

REPORT INFORMATION
  Report Type: 
  Country: None (occurrence: None)
  Receive Date: 20120313
  Receipt Date: 20120313
  Transmission Date: 20120608
  Serious: Yes (Other)
  Sender: FDA-Public Use
  Company Number: None

PATIENT
  Age: 64 Year
  Sex: Male
  Weight: 82.5 kg

DRUGS (7)
  1. LOVAZA [Concomitant]
  2. RAMIPRIL [Concomitant]
  3. VITAMIN D [Concomitant]
  4. ASPIRIN [Concomitant]
  5. CLOPIDOGREL [Concomitant]
  6. EFFIENT [Suspect]
  7. ROSUVASTATIN [Concomitant]

REACTIONS (2)
  - RASH [None]
  - PRURITUS [None]
